FAERS Safety Report 6807643-6 (Version None)
Quarter: 2010Q2

REPORT INFORMATION
  Report Type: 
  Country: None (occurrence: None)
  Receive Date: 20100629
  Receipt Date: 20081111
  Transmission Date: 20101027
  Serious: No
  Sender: FDA-Public Use
  Company Number: US-PFIZER INC-2008095607

PATIENT
  Sex: Male
  Weight: 65.9 kg

DRUGS (4)
  1. VIAGRA [Suspect]
     Indication: ERECTILE DYSFUNCTION
  2. ATENOLOL [Concomitant]
  3. LIPITOR [Concomitant]
     Indication: BLOOD CHOLESTEROL INCREASED
  4. NIASPAN [Concomitant]

REACTIONS (2)
  - ASTHENIA [None]
  - DRUG INEFFECTIVE [None]
